FAERS Safety Report 8274845-4 (Version None)
Quarter: 2012Q2

REPORT INFORMATION
  Report Type: 
  Country: None (occurrence: None)
  Receive Date: 20120411
  Receipt Date: 20120331
  Transmission Date: 20120825
  Serious: Yes (Other)
  Sender: FDA-Public Use
  Company Number: CN-GILEAD-2012-0053107

PATIENT
  Age: 62 Year
  Sex: Female

DRUGS (2)
  1. LAMIVUDINE [Suspect]
     Indication: HEPATITIS ACUTE
     Route: 048
     Dates: start: 20120101
  2. HEPSERA [Suspect]
     Indication: HEPATITIS B
     Dosage: 10 MG PER DAY
     Route: 048
     Dates: start: 20091101

REACTIONS (1)
  - GASTRIC CANCER [None]
